FAERS Safety Report 6367567-8 (Version None)
Quarter: 2009Q3

REPORT INFORMATION
  Report Type: 
  Country: None (occurrence: None)
  Receive Date: 20090921
  Receipt Date: 20090911
  Transmission Date: 20100115
  Serious: Yes (Other)
  Sender: FDA-Public Use
  Company Number: US-PFIZER INC-2009268991

PATIENT
  Sex: Female

DRUGS (6)
  1. PROVERA [Suspect]
     Indication: HORMONE REPLACEMENT THERAPY
     Route: 048
  2. MEDROXYPROGESTERONE AND MEDROXYPROGESTERONE ACETATE [Suspect]
     Indication: HORMONE REPLACEMENT THERAPY
     Dosage: 2.50 MG, UNK
     Route: 048
     Dates: start: 19980301, end: 20010201
  3. PREMPRO [Suspect]
     Indication: HORMONE REPLACEMENT THERAPY
     Dosage: 0.625/2.5MG
     Dates: start: 19980301, end: 20010201
  4. PREMARIN [Suspect]
     Indication: HORMONE REPLACEMENT THERAPY
     Dosage: 0.625 MG, UNK
     Dates: start: 19980301, end: 20010201
  5. ESTROPIPATE [Suspect]
     Indication: HORMONE REPLACEMENT THERAPY
     Dosage: 0.75 MG, UNK
     Dates: start: 19980301, end: 20010201
  6. ESTRADIOL [Suspect]
     Indication: HORMONE REPLACEMENT THERAPY
     Dosage: 1.0 MG, UNK
     Dates: start: 19980301, end: 20010201

REACTIONS (1)
  - BREAST CANCER FEMALE [None]
